FAERS Safety Report 6648415-5 (Version None)
Quarter: 2010Q1

REPORT INFORMATION
  Report Type: 
  Country: None (occurrence: None)
  Receive Date: 20100319
  Receipt Date: 20100310
  Transmission Date: 20100710
  Serious: Yes (Hospitalization, Other)
  Sender: FDA-Public Use
  Company Number: 2010SP015376

PATIENT
  Age: 54 Year
  Sex: Female

DRUGS (2)
  1. INTERFERON [Suspect]
     Indication: HEPATITIS C
     Dates: start: 20070101
  2. RIBAVIRIN [Suspect]
     Indication: HEPATITIS C
     Dosage: PO
     Route: 048
     Dates: start: 20070101

REACTIONS (5)
  - CHEST PAIN [None]
  - IATROGENIC INJURY [None]
  - INFECTION [None]
  - KIDNEY RUPTURE [None]
  - NEPHROLITHIASIS [None]
